FAERS Safety Report 14178874 (Version 1)
Quarter: 2017Q4

REPORT INFORMATION
  Report Type: Report from Study
  Country: US (occurrence: US)
  Receive Date: 20171111
  Receipt Date: 20171111
  Transmission Date: 20180321
  Serious: Yes (Death, Hospitalization, Other)
  Sender: FDA-Public Use
  Company Number: US-BRISTOL-MYERS SQUIBB COMPANY-BMS-2017-102210

PATIENT
  Age: 5 Year
  Sex: Female
  Weight: 12.9 kg

DRUGS (3)
  1. IPILIMUMAB [Suspect]
     Active Substance: IPILIMUMAB
     Indication: RHABDOMYOSARCOMA
     Dosage: 1 MG/KG, OVER 90 MINUTES ON DAY 1
     Route: 042
     Dates: start: 20170814
  2. NIVOLUMAB [Suspect]
     Active Substance: NIVOLUMAB
     Indication: RHABDOMYOSARCOMA
     Dosage: 3 MG/KG, OVER 60 MINUTES ON DAY 1
     Route: 042
     Dates: start: 20170814
  3. ETOPOSIDE. [Suspect]
     Active Substance: ETOPOSIDE
     Indication: PRODUCT USED FOR UNKNOWN INDICATION
     Dosage: UNK
     Route: 048
     Dates: start: 20170911

REACTIONS (10)
  - Aspartate aminotransferase increased [Unknown]
  - Abdominal pain [Unknown]
  - Pain [Unknown]
  - Anxiety [Unknown]
  - Tachycardia [Unknown]
  - Dehydration [Unknown]
  - Electrolyte imbalance [Unknown]
  - Delirium [Unknown]
  - Malignant neoplasm progression [Fatal]
  - Hyponatraemia [Unknown]

NARRATIVE: CASE EVENT DATE: 20170911
